FAERS Safety Report 6531394-9 (Version None)
Quarter: 2010Q1

REPORT INFORMATION
  Report Type: 
  Country: None (occurrence: None)
  Receive Date: 20100108
  Receipt Date: 20091204
  Transmission Date: 20100710
  Serious: No
  Sender: FDA-Public Use
  Company Number: A0813391A

PATIENT
  Age: 57 Year
  Sex: Female

DRUGS (1)
  1. TYKERB [Suspect]
     Indication: BREAST CANCER
     Dosage: 5TAB PER DAY
     Route: 048
     Dates: start: 20091012

REACTIONS (12)
  - ACNE [None]
  - CONDITION AGGRAVATED [None]
  - FATIGUE [None]
  - INSOMNIA [None]
  - MILIA [None]
  - MORBID THOUGHTS [None]
  - NAUSEA [None]
  - RASH [None]
  - RASH PRURITIC [None]
  - RASH PUSTULAR [None]
  - SKIN INFECTION [None]
  - SLEEP DISORDER [None]
